FAERS Safety Report 9190834 (Version 1)
Quarter: 2013Q1

REPORT INFORMATION
  Report Type: Spontaneous
  Country: US (occurrence: US)
  Receive Date: 20130326
  Receipt Date: 20130326
  Transmission Date: 20140127
  Serious: Yes (Other)
  Sender: FDA-Public Use
  Company Number: US-GLAXOSMITHKLINE-A1016702A

PATIENT
  Age: 66 Year
  Sex: Female

DRUGS (8)
  1. HORIZANT [Suspect]
     Indication: NEUROPATHY PERIPHERAL
     Dosage: 600MG PER DAY
     Route: 048
     Dates: start: 201211, end: 201301
  2. NEURONTIN [Concomitant]
  3. INSULIN [Concomitant]
  4. ESTROGEN + PROGESTERONE [Concomitant]
  5. ASPIRIN [Concomitant]
  6. VITAMIN B COMPLEX [Concomitant]
  7. CALCIUM [Concomitant]
  8. VITAMIN D [Concomitant]

REACTIONS (1)
  - Diabetes mellitus [Recovered/Resolved]
